FAERS Safety Report 9369029 (Version 1)
Quarter: 2013Q2

REPORT INFORMATION
  Report Type: Spontaneous
  Country: FR (occurrence: FR)
  Receive Date: 20130626
  Receipt Date: 20130626
  Transmission Date: 20140414
  Serious: Yes (Other)
  Sender: FDA-Public Use
  Company Number: PHHY2013FR064285

PATIENT
  Sex: Female
  Weight: 2.43 kg

DRUGS (1)
  1. EXJADE [Suspect]
     Dosage: 500 MG DAILY MATERNAL DOSE
     Route: 064

REACTIONS (2)
  - Foetal growth restriction [Unknown]
  - Maternal exposure during delivery [Unknown]
